FAERS Safety Report 7992458-6 (Version None)
Quarter: 2011Q4

REPORT INFORMATION
  Report Type: 
  Country: None (occurrence: None)
  Receive Date: 20111219
  Receipt Date: 20111212
  Transmission Date: 20120403
  Serious: Yes (Other)
  Sender: FDA-Public Use
  Company Number: PHHY2011BR108088

PATIENT
  Age: 84 Year
  Sex: Female

DRUGS (1)
  1. FORMOTEROL FUMARATE [Suspect]

REACTIONS (7)
  - BRONCHITIS [None]
  - MUSCULOSKELETAL PAIN [None]
  - OSTEOPOROSIS [None]
  - DEVICE MALFUNCTION [None]
  - CARDIAC DISORDER [None]
  - INFARCTION [None]
  - INCORRECT ROUTE OF DRUG ADMINISTRATION [None]
